FAERS Safety Report 15630401 (Version 1)
Quarter: 2018Q4

REPORT INFORMATION
  Report Type: Report from Study
  Country: None (occurrence: FR)
  Receive Date: 20181118
  Receipt Date: 20181118
  Transmission Date: 20190205
  Serious: Yes (Disabling)
  Sender: FDA-Public Use
  Company Number: FR-ABBVIE-18K-056-2530132-00

PATIENT
  Sex: Male
  Weight: 80 kg

DRUGS (9)
  1. TRAMADOL. [Concomitant]
     Active Substance: TRAMADOL
     Indication: MIGRAINE
     Dosage: SPORADICALLY 1/2 TO 1 TABLET, I.E. 25 TO 50 MG, APPROXIMATELY?TWICE A WEEK
     Route: 048
     Dates: start: 2016
  2. GAVISCON [Concomitant]
     Active Substance: ALUMINUM HYDROXIDE\MAGNESIUM CARBONATE
     Indication: ABDOMINAL PAIN UPPER
     Dosage: 4 - 6 SACHETS OF 10 ML / DAY
     Route: 048
     Dates: start: 2016
  3. OXYNORM [Concomitant]
     Active Substance: OXYCODONE HYDROCHLORIDE
     Indication: BONE PAIN
     Dosage: 5 MG IN THE MORNING; 5 MG IN THE EVENING
     Dates: start: 20180905
  4. DAFALGAN CODEINE [Concomitant]
     Active Substance: ACETAMINOPHEN\CODEINE PHOSPHATE
     Indication: TONSILLITIS
     Route: 048
     Dates: start: 20180911, end: 20180914
  5. MAVIRET [Suspect]
     Active Substance: GLECAPREVIR\PIBRENTASVIR
     Indication: HEPATITIS C
     Dosage: AT 08:30 PM
     Route: 048
     Dates: start: 20181028
  6. AMLODIPINE [Concomitant]
     Active Substance: AMLODIPINE BESYLATE
     Indication: HYPERTENSION
     Dosage: 10 MG IN THE MORNING
     Route: 048
     Dates: start: 2016
  7. ATENOLOL. [Concomitant]
     Active Substance: ATENOLOL
     Indication: HYPERTENSION
     Dosage: 50 MG IN THE MORNING
     Route: 048
     Dates: start: 2016
  8. OXYCODONE LP [Concomitant]
     Indication: BONE PAIN
     Dosage: 40 MG IN THE MORNING; 40 MG IN THE EVENING
     Dates: start: 20180905
  9. KETODERM 2% [Concomitant]
     Indication: FUNGAL SKIN INFECTION
     Dosage: 1 APPLICATION IN THE EVENING
     Route: 061

REACTIONS (5)
  - Insomnia [Not Recovered/Not Resolved]
  - Fatigue [Not Recovered/Not Resolved]
  - Dyspepsia [Unknown]
  - Abdominal pain upper [Recovering/Resolving]
  - Diarrhoea [Not Recovered/Not Resolved]
